FAERS Safety Report 5978035-7 (Version None)
Quarter: 2008Q4

REPORT INFORMATION
  Report Type: 
  Country: None (occurrence: None)
  Receive Date: 20081126
  Receipt Date: 20081021
  Transmission Date: 20090506
  Serious: Yes (Life-Threatening)
  Sender: FDA-Public Use
  Company Number: 2008-185640-NL

PATIENT
  Age: 26 Year
  Sex: Female

DRUGS (4)
  1. VECURONIUM BROMIDE [Suspect]
     Route: 042
  2. ATROPINE SULFATE [Concomitant]
  3. PROPOFOL [Concomitant]
  4. METHIMAZOLE [Concomitant]

REACTIONS (3)
  - ANAPHYLACTOID SHOCK [None]
  - CYANOSIS [None]
  - ELECTROCARDIOGRAM ST SEGMENT DEPRESSION [None]
